FAERS Safety Report 9492541 (Version 2)
Quarter: 2013Q3

REPORT INFORMATION
  Report Type: Spontaneous
  Country: DE (occurrence: DE)
  Receive Date: 20130830
  Receipt Date: 20130906
  Transmission Date: 20140515
  Serious: Yes (Hospitalization, Other)
  Sender: FDA-Public Use
  Company Number: PHHY2013DE094787

PATIENT
  Sex: Female

DRUGS (4)
  1. DIOVAN [Suspect]
     Dosage: 80 MG, UNK
  2. DIOVAN [Suspect]
     Dosage: UNK UKN, UNK
  3. EXFORGE [Suspect]
  4. NEBILET [Concomitant]
     Dosage: UNK UKN, UNK

REACTIONS (7)
  - Atrial fibrillation [Unknown]
  - Blood pressure abnormal [Unknown]
  - Ocular icterus [Not Recovered/Not Resolved]
  - Yellow skin [Not Recovered/Not Resolved]
  - Tooth loss [Unknown]
  - Jaw disorder [Unknown]
  - Heart rate increased [Unknown]
